FAERS Safety Report 7263723-5 (Version None)
Quarter: 2011Q1

REPORT INFORMATION
  Report Type: 
  Country: None (occurrence: None)
  Receive Date: 20110130
  Receipt Date: 20101028
  Transmission Date: 20110831
  Serious: No
  Sender: FDA-Public Use
  Company Number: US-ABBOTT-10P-163-0682227-00

PATIENT
  Age: 58 Year
  Sex: Female

DRUGS (9)
  1. TRIAMCINOLONE [Concomitant]
     Indication: PRODUCT USED FOR UNKNOWN INDICATION
  2. CLOBETASOL PROPIONATE [Concomitant]
     Indication: PRODUCT USED FOR UNKNOWN INDICATION
     Dosage: SHAMPOO 5%
  3. SEROQUEL [Concomitant]
     Indication: ANXIETY
  4. ZOLOFT [Concomitant]
     Indication: ANXIETY
  5. SALICYLIC ACID 6% CREAM [Concomitant]
     Indication: PRODUCT USED FOR UNKNOWN INDICATION
  6. ZOLOFT [Concomitant]
     Indication: PANIC ATTACK
  7. HUMIRA [Suspect]
     Indication: PSORIASIS
     Dosage: 80 MG LOADING DOSE THEN 40MG
     Dates: start: 20101022
  8. SEROQUEL [Concomitant]
     Indication: DEPRESSION
  9. ALEVE [Concomitant]
     Indication: HEADACHE

REACTIONS (2)
  - PRURITUS [None]
  - SKIN EXFOLIATION [None]
